FAERS Safety Report 8887922 (Version 1)
Quarter: 2012Q4

REPORT INFORMATION
  Report Type: Spontaneous
  Country: BR (occurrence: None)
  Receive Date: 20121031
  Receipt Date: 20121031
  Transmission Date: 20130627
  Serious: Yes (Hospitalization)
  Sender: FDA-Public Use
  Company Number: DSJ-2012-19620

PATIENT
  Age: 92 Year
  Sex: Female
  Weight: 52 kg

DRUGS (8)
  1. BENICAR HCT [Suspect]
     Indication: HYPERTENSION
     Dosage: (1 IN 1 D)
     Route: 048
     Dates: end: 2012
  2. BENICAR HCT [Suspect]
     Indication: HYPERTENSION
     Dosage: (1 in 1 d)
     Route: 048
     Dates: start: 2012
  3. ATORVASTATIN (ATORVASTATIN)(ATORVASTATIN) [Concomitant]
  4. PANTOPRAZOLE  ( PANTOPRAZOLE) ( PANTOPRAZOLE ) [Concomitant]
  5. ACETYLSALICYLIC ACID (ACETYLSALICYLIC ACID)(ACETYLSALICYLIC ACID) [Concomitant]
  6. METOPROLOL (METOPROLOL) (METOPROLOL) [Concomitant]
  7. LEVOTHYROXINE SODIUM (LEVOTHYROXINE SODIUM)(LEVOTHYROXINE SODIUM) [Concomitant]
  8. MANIDIPINE (MANIDIPINE)(MANIDIPINE) [Concomitant]

REACTIONS (1)
  - Infarction [None]
